FAERS Safety Report 22139088 (Version 2)
Quarter: 2023Q1

REPORT INFORMATION
  Report Type: Spontaneous
  Country: US (occurrence: US)
  Receive Date: 20230327
  Receipt Date: 20230330
  Transmission Date: 20230418
  Serious: No
  Sender: FDA-Public Use
  Company Number: US-AMGEN-USASP2023051256

PATIENT

DRUGS (1)
  1. OTEZLA [Suspect]
     Active Substance: APREMILAST
     Indication: Product used for unknown indication
     Dosage: STARTER PACK --WITHIN FIRST 4 WEEKS
     Route: 048
     Dates: start: 2022

REACTIONS (3)
  - Anxiety [Unknown]
  - Feeling jittery [Unknown]
  - Mood altered [Unknown]
